FAERS Safety Report 5513751-2 (Version None)
Quarter: 2007Q4

REPORT INFORMATION
  Report Type: 
  Country: None (occurrence: None)
  Receive Date: 20071106
  Receipt Date: 20070105
  Transmission Date: 20080405
  Serious: Yes (Other)
  Sender: FDA-Public Use
  Company Number: US-JNJFOC-20061104635

PATIENT
  Age: 23 Year
  Sex: Male
  Weight: 77.1115 kg

DRUGS (2)
  1. IBUPROFEN [Suspect]
     Indication: JOINT SWELLING
     Dates: start: 20060920
  2. ALEVE [Suspect]
     Indication: JOINT SWELLING
     Dosage: 220 MG, 1 IN 1 TOTAL, ORAL
     Route: 048
     Dates: start: 20060920, end: 20060920

REACTIONS (1)
  - HYPERSENSITIVITY [None]
